FAERS Safety Report 5312213-5 (Version None)
Quarter: 2007Q2

REPORT INFORMATION
  Report Type: 
  Country: None (occurrence: None)
  Receive Date: 20070430
  Receipt Date: 20061010
  Transmission Date: 20071010
  Serious: No
  Sender: FDA-Public Use
  Company Number: 2006UW16152

PATIENT
  Age: 59 Year
  Sex: Female
  Weight: 135.5 kg

DRUGS (5)
  1. NEXIUM [Suspect]
     Indication: GASTROOESOPHAGEAL REFLUX DISEASE
     Route: 048
     Dates: start: 20010101
  2. NEXIUM [Suspect]
     Indication: DIVERTICULUM
     Route: 048
     Dates: start: 20010101
  3. IRON [Concomitant]
  4. MAGNESIUM SULFATE [Concomitant]
  5. FIBER SUPPLEMENTS [Concomitant]
     Indication: CONSTIPATION

REACTIONS (1)
  - ANAEMIA [None]
